FAERS Safety Report 11310941 (Version 17)
Quarter: 2020Q4

REPORT INFORMATION
  Report Type: Other
  Country: DE (occurrence: DE)
  Receive Date: 20150726
  Receipt Date: 20201125
  Transmission Date: 20210113
  Serious: Yes (Hospitalization)
  Sender: FDA-Public Use
  Company Number: DE-ROCHE-1612391

PATIENT
  Age: 60 Year
  Sex: Female

DRUGS (13)
  1. BONVIVA [Concomitant]
     Active Substance: IBANDRONATE SODIUM
     Dates: start: 20190605
  2. L-THYROXIN [Concomitant]
     Active Substance: LEVOTHYROXINE SODIUM
  3. INSULIN [Concomitant]
     Active Substance: INSULIN NOS
     Dosage: LONG-ACTING
  4. ROACTEMRA [Suspect]
     Active Substance: TOCILIZUMAB
     Indication: GIANT CELL ARTERITIS
     Dosage: DATE OF LAST DOSE: 30/AUG/2015
     Route: 058
     Dates: start: 20150101
  5. IBANDRONIC ACID. [Concomitant]
     Active Substance: IBANDRONIC ACID
     Dates: start: 20190605
  6. NOVOTHYRAL [Concomitant]
     Active Substance: LEVOTHYROXINE SODIUM\LIOTHYRONINE SODIUM
  7. PANTOPRAZOL [Concomitant]
     Active Substance: PANTOPRAZOLE SODIUM
     Dosage: IN EVENING
  8. ROACTEMRA [Suspect]
     Active Substance: TOCILIZUMAB
     Route: 058
     Dates: start: 20171113
  9. CORTISONE [Suspect]
     Active Substance: CORTISONE
     Indication: C-REACTIVE PROTEIN INCREASED
     Route: 065
  10. ROACTEMRA [Suspect]
     Active Substance: TOCILIZUMAB
     Indication: RHEUMATOID ARTHRITIS
     Route: 058
     Dates: start: 20170906, end: 20171112
  11. IBANDRONIC ACID. [Concomitant]
     Active Substance: IBANDRONIC ACID
  12. VICTOZA [Concomitant]
     Active Substance: LIRAGLUTIDE
     Indication: WEIGHT INCREASED
  13. ROACTEMRA [Suspect]
     Active Substance: TOCILIZUMAB
     Indication: GIANT CELL ARTERITIS
     Route: 042
     Dates: start: 201201

REACTIONS (10)
  - Product storage error [Unknown]
  - Lymphatic disorder [Not Recovered/Not Resolved]
  - Bronchitis [Recovered/Resolved]
  - Fluid retention [Not Recovered/Not Resolved]
  - Musculoskeletal stiffness [Recovered/Resolved]
  - Endocarditis [Recovering/Resolving]
  - Osteoporosis [Not Recovered/Not Resolved]
  - C-reactive protein increased [Recovered/Resolved]
  - Off label use [Unknown]
  - Lymphoedema [Not Recovered/Not Resolved]

NARRATIVE: CASE EVENT DATE: 20150101
